FAERS Safety Report 8262616-4 (Version None)
Quarter: 2012Q2

REPORT INFORMATION
  Report Type: 
  Country: None (occurrence: None)
  Receive Date: 20120405
  Receipt Date: 20120329
  Transmission Date: 20120825
  Serious: Yes (Death)
  Sender: FDA-Public Use
  Company Number: JP-ASTRAZENECA-2012SE18669

PATIENT
  Age: 76 Year
  Sex: Female

DRUGS (12)
  1. MEROPENEM [Suspect]
     Route: 042
     Dates: start: 20110829, end: 20110901
  2. COTRIM [Concomitant]
  3. PREDNISOLONE [Concomitant]
     Indication: MULTIPLE MYELOMA
     Dates: start: 20110104
  4. REVLIMID [Concomitant]
     Indication: MULTIPLE MYELOMA
     Dates: start: 20101021, end: 20110104
  5. GRAN (G-CSF) [Concomitant]
  6. REVLIMID [Concomitant]
     Dates: start: 20110811
  7. FAMOTIDINE [Concomitant]
  8. MEROPENEM [Suspect]
     Indication: FEBRILE NEUTROPENIA
     Route: 042
     Dates: start: 20110821, end: 20110826
  9. SLULACT [Concomitant]
  10. SOLDEM 3AG [Concomitant]
  11. HACHIAZULE GARGLE [Concomitant]
  12. DERIBADEX [Concomitant]

REACTIONS (5)
  - BLOOD UREA INCREASED [None]
  - PETECHIAE [None]
  - PYREXIA [None]
  - ERYTHEMA [None]
  - DEATH [None]
